FAERS Safety Report 20229474 (Version 2)
Quarter: 2022Q1

REPORT INFORMATION
  Report Type: Report from Study
  Country: BR (occurrence: BR)
  Receive Date: 20211225
  Receipt Date: 20220314
  Transmission Date: 20220424
  Serious: Yes (Other)
  Sender: FDA-Public Use
  Company Number: BR-NOVARTISPH-NVSC2021BR276524

PATIENT
  Age: 41 Year
  Sex: Female

DRUGS (3)
  1. KISQALI [Suspect]
     Active Substance: RIBOCICLIB
     Indication: Breast cancer metastatic
     Dosage: 3 UNK
     Route: 065
     Dates: start: 20210415
  2. FEMARA [Suspect]
     Active Substance: LETROZOLE
     Indication: Breast cancer metastatic
     Dosage: 2.5 MG
     Route: 065
     Dates: start: 20210415
  3. ZOLADEX [Concomitant]
     Active Substance: GOSERELIN ACETATE
     Indication: Product used for unknown indication
     Dosage: UNK (BEFORE KISQALI)
     Route: 065

REACTIONS (17)
  - Metastasis [Unknown]
  - Nausea [Unknown]
  - Vulvovaginal dryness [Unknown]
  - Pain in extremity [Unknown]
  - Asthenia [Unknown]
  - Pallor [Unknown]
  - Skin wrinkling [Unknown]
  - Dry skin [Not Recovered/Not Resolved]
  - Bone pain [Unknown]
  - Inflammation [Unknown]
  - Pain [Not Recovered/Not Resolved]
  - Gait inability [Unknown]
  - Limb discomfort [Unknown]
  - Gait disturbance [Unknown]
  - Weight increased [Unknown]
  - Injury [Unknown]
  - Drug ineffective [Unknown]

NARRATIVE: CASE EVENT DATE: 20211101
